FAERS Safety Report 24034234 (Version 1)
Quarter: 2024Q3

REPORT INFORMATION
  Report Type: Spontaneous
  Country: CN (occurrence: CN)
  Receive Date: 20240701
  Receipt Date: 20240701
  Transmission Date: 20241017
  Serious: Yes (Death, Other)
  Sender: QILU PHARMACEUTICAL
  Company Number: CN-QILU PHARMACEUTICAL CO.LTD.-QLU-000095-2024

PATIENT
  Age: 65 Year
  Sex: Male

DRUGS (14)
  1. CISPLATIN [Suspect]
     Active Substance: CISPLATIN
     Indication: Neuroendocrine carcinoma of prostate
     Dosage: 50 MG AND PREPARED TO REPEAT EVERY 4 WEEKS
     Route: 065
     Dates: start: 202309
  2. CISPLATIN [Suspect]
     Active Substance: CISPLATIN
     Indication: Metastases to bladder
  3. CISPLATIN [Suspect]
     Active Substance: CISPLATIN
     Indication: Metastases to bone
  4. CISPLATIN [Suspect]
     Active Substance: CISPLATIN
     Indication: Metastases to lung
  5. CISPLATIN [Suspect]
     Active Substance: CISPLATIN
     Indication: Metastases to liver
  6. CISPLATIN [Suspect]
     Active Substance: CISPLATIN
     Indication: Metastases to bladder
  7. CISPLATIN [Suspect]
     Active Substance: CISPLATIN
     Indication: Metastases to bone
  8. ETOPOSIDE [Suspect]
     Active Substance: ETOPOSIDE
     Indication: Neuroendocrine carcinoma of prostate
     Dosage: 150 MG DAILY AND PREPARED TO REPEAT EVERY 4 WEEKS
     Route: 065
     Dates: start: 202309
  9. ETOPOSIDE [Suspect]
     Active Substance: ETOPOSIDE
     Indication: Metastases to bladder
  10. ETOPOSIDE [Suspect]
     Active Substance: ETOPOSIDE
     Indication: Metastases to bone
  11. ETOPOSIDE [Suspect]
     Active Substance: ETOPOSIDE
     Indication: Metastases to lung
  12. ETOPOSIDE [Suspect]
     Active Substance: ETOPOSIDE
     Indication: Metastases to liver
  13. ETOPOSIDE [Suspect]
     Active Substance: ETOPOSIDE
     Indication: Metastases to pelvis
  14. ETOPOSIDE [Suspect]
     Active Substance: ETOPOSIDE
     Indication: Metastases to bone

REACTIONS (3)
  - Multiple organ dysfunction syndrome [Fatal]
  - Myelosuppression [Fatal]
  - Off label use [Unknown]

NARRATIVE: CASE EVENT DATE: 20230901
